FAERS Safety Report 21037281 (Version 2)
Quarter: 2022Q4

REPORT INFORMATION
  Report Type: Spontaneous
  Country: US (occurrence: US)
  Receive Date: 20220703
  Receipt Date: 20221019
  Transmission Date: 20230113
  Serious: No
  Sender: FDA-Public Use
  Company Number: US-BRISTOL-MYERS SQUIBB COMPANY-2022-062731

PATIENT
  Age: 72 Year
  Sex: Female

DRUGS (2)
  1. REVLIMID [Suspect]
     Active Substance: LENALIDOMIDE
     Indication: Plasma cell myeloma
     Route: 065
  2. REVLIMID [Suspect]
     Active Substance: LENALIDOMIDE
     Dosage: 1 DF: 1 CAPSULE?FREQ: TAKE 1 CAPSULE BY MOUTH EVERY DAY AFTER DINNER. DO NOT BREAK, CHEW, OR OPEN CA
     Route: 048
     Dates: start: 20220621

REACTIONS (1)
  - Product dose omission issue [Unknown]
